FAERS Safety Report 21120962 (Version 1)
Quarter: 2022Q3

REPORT INFORMATION
  Report Type: Report from Study
  Country: US (occurrence: US)
  Receive Date: 20220722
  Receipt Date: 20220722
  Transmission Date: 20221026
  Serious: No
  Sender: FDA-Public Use
  Company Number: US-MIRM-000398

PATIENT
  Sex: Male

DRUGS (4)
  1. LIVMARLI [Suspect]
     Active Substance: MARALIXIBAT CHLORIDE
     Indication: Pruritus
     Route: 048
     Dates: start: 202111
  2. 92278 (GLOBALC3Sep19): Hydroxyaine [Concomitant]
     Indication: Product used for unknown indication
     Route: 048
  3. 1328777 (GLOBALC3Sep19): Ursodiol [Concomitant]
     Indication: Product used for unknown indication
     Route: 048
  4. 120987 (GLOBALC3Sep19): Montelukast [Concomitant]
     Indication: Product used for unknown indication
     Route: 048

REACTIONS (2)
  - Hepatic enzyme increased [Unknown]
  - Pruritus [Unknown]

NARRATIVE: CASE EVENT DATE: 20220101
